FAERS Safety Report 6700295-5 (Version None)
Quarter: 2010Q2

REPORT INFORMATION
  Report Type: 
  Country: None (occurrence: None)
  Receive Date: 20100428
  Receipt Date: 20100420
  Transmission Date: 20101027
  Serious: Yes (Hospitalization)
  Sender: FDA-Public Use
  Company Number: IT-PFIZER INC-2010045530

PATIENT
  Age: 69 Year
  Sex: Male

DRUGS (9)
  1. VINCRISTINE [Suspect]
     Indication: FOLLICLE CENTRE LYMPHOMA, FOLLICULAR GRADE I, II, III RECURRENT
     Dosage: 2 MG CYCLIC
     Route: 042
     Dates: start: 20091021, end: 20100219
  2. ADRIBLASTINA [Suspect]
     Indication: FOLLICLE CENTRE LYMPHOMA, FOLLICULAR GRADE I, II, III RECURRENT
     Dosage: 90 MG CYCLIC
     Route: 042
     Dates: start: 20091021, end: 20100219
  3. CYCLOPHOSPHAMIDE [Suspect]
     Indication: FOLLICLE CENTRE LYMPHOMA, FOLLICULAR GRADE I, II, III RECURRENT
     Dosage: 1350 MG CYCLIC
     Route: 042
     Dates: start: 20091021, end: 20100219
  4. URBASON [Suspect]
     Indication: FOLLICLE CENTRE LYMPHOMA, FOLLICULAR GRADE I, II, III RECURRENT
     Dosage: 80 MG CYCLICAL
     Route: 042
     Dates: start: 20091021, end: 20100219
  5. PREDNISONE [Suspect]
     Indication: FOLLICLE CENTRE LYMPHOMA, FOLLICULAR GRADE I, II, III RECURRENT
     Dosage: 75 MG CYCLICAL
     Route: 048
     Dates: start: 20091021, end: 20100219
  6. ALLOPURINOL [Concomitant]
     Dosage: 300 MG
     Route: 048
  7. ZOFRAN [Concomitant]
     Dosage: 8 MG
     Route: 042
     Dates: start: 20091021, end: 20100219
  8. SELEPARINA [Concomitant]
     Dosage: 1.4 ML
     Route: 058
  9. LEVOXACIN [Concomitant]
     Dosage: 500 MG
     Route: 048

REACTIONS (2)
  - GASTROENTERITIS [None]
  - NEUTROPENIA [None]
